FAERS Safety Report 12581991 (Version 1)
Quarter: 2016Q3

REPORT INFORMATION
  Report Type: Spontaneous
  Country: US (occurrence: US)
  Receive Date: 20160722
  Receipt Date: 20160722
  Transmission Date: 20161109
  Serious: No
  Sender: FDA-Public Use
  Company Number: US-TEVA-619520USA

PATIENT
  Sex: Female

DRUGS (3)
  1. RELPAX (ELETRIPTAN HBR) [Concomitant]
     Dates: start: 201511
  2. NARATRIPTAN [Suspect]
     Active Substance: NARATRIPTAN HYDROCHLORIDE
     Indication: MIGRAINE
     Dosage: PRN
     Dates: start: 201505, end: 201509
  3. RELPAX (ELETRIPTAN HBR) [Concomitant]
     Indication: MIGRAINE
     Dosage: PRN
     Dates: start: 201503

REACTIONS (1)
  - Migraine [Unknown]
